FAERS Safety Report 15860289 (Version 1)
Quarter: 2019Q1

REPORT INFORMATION
  Report Type: Spontaneous
  Country: DE (occurrence: DE)
  Receive Date: 20190123
  Receipt Date: 20190123
  Transmission Date: 20190417
  Serious: Yes (Hospitalization, Other)
  Sender: FDA-Public Use
  Company Number: PHHY2019DE013351

PATIENT
  Age: 70 Year
  Sex: Female
  Weight: 60 kg

DRUGS (10)
  1. ESTRAMON (ESTRADIOL) [Suspect]
     Active Substance: ESTRADIOL
     Indication: MENOPAUSE
     Dosage: 50 UG, Q72H
     Route: 062
     Dates: start: 201801, end: 201807
  2. ESTRADERM [Concomitant]
     Active Substance: ESTRADIOL
     Dosage: 25 UG, Q72H
     Route: 062
     Dates: start: 200903, end: 201006
  3. EUTHYROX [Concomitant]
     Active Substance: LEVOTHYROXINE SODIUM
     Indication: HYPERTHYROIDISM
     Dosage: UNK
     Route: 065
  4. PAMBA [Concomitant]
     Indication: PRODUCT USED FOR UNKNOWN INDICATION
     Dosage: UNK
     Route: 065
  5. 28 MINI [Concomitant]
     Indication: PRODUCT USED FOR UNKNOWN INDICATION
     Dosage: 0.03 MG, QD
     Route: 065
     Dates: start: 200811, end: 201807
  6. CANDESARTAN. [Concomitant]
     Active Substance: CANDESARTAN
     Indication: HYPERTENSION
     Dosage: UNK
     Route: 065
  7. ESTRADERM [Concomitant]
     Active Substance: ESTRADIOL
     Indication: MENOPAUSE
     Dosage: 50 UG, Q72H
     Route: 062
     Dates: start: 200903, end: 201003
  8. ESTRADOT [Concomitant]
     Active Substance: ESTRADIOL
     Indication: MENOPAUSE
     Dosage: 50 UG, Q72H
     Route: 062
     Dates: start: 200301, end: 201801
  9. MONOPROST [Concomitant]
     Active Substance: LATANOPROST
     Indication: OCULAR HYPERTENSION
     Dosage: UNK
     Route: 065
  10. NEBIVOLOL STADA [Concomitant]
     Indication: PRODUCT USED FOR UNKNOWN INDICATION
     Dosage: UNK
     Route: 065

REACTIONS (3)
  - Breast cancer [Not Recovered/Not Resolved]
  - Breast cyst [Not Recovered/Not Resolved]
  - Product substitution issue [Unknown]

NARRATIVE: CASE EVENT DATE: 2018
